FAERS Safety Report 8224481-0 (Version None)
Quarter: 2012Q1

REPORT INFORMATION
  Report Type: 
  Country: None (occurrence: None)
  Receive Date: 20120321
  Receipt Date: 20120315
  Transmission Date: 20120608
  Serious: Yes (Other)
  Sender: FDA-Public Use
  Company Number: PHEH2012US005942

PATIENT
  Sex: Male

DRUGS (8)
  1. GILENYA [Suspect]
     Dosage: 0.5 MG, QD
     Route: 048
  2. ASPIRIN [Concomitant]
     Dosage: 325 MG, UNK
  3. IBUPROFEN [Concomitant]
     Dosage: 200 MG, UNK
  4. VITAMIN D [Concomitant]
     Dosage: 1000 U, UNK
  5. PROVIGIL [Concomitant]
     Dosage: 200 MG, UNK
  6. EFFEXOR [Concomitant]
     Dosage: 25 MG, UNK
  7. XANAX [Concomitant]
     Dosage: 0.5 MG, UNK
  8. ANDROGEL [Concomitant]
     Dosage: 25 MG, UNK

REACTIONS (5)
  - HEADACHE [None]
  - BLINDNESS TRANSIENT [None]
  - DIARRHOEA [None]
  - TERMINAL INSOMNIA [None]
  - CONFUSIONAL STATE [None]
